FAERS Safety Report 13001112 (Version 1)
Quarter: 2016Q4

REPORT INFORMATION
  Report Type: Spontaneous
  Country: IT (occurrence: IT)
  Receive Date: 20161206
  Receipt Date: 20161206
  Transmission Date: 20170207
  Serious: Yes (Other)
  Sender: FDA-Public Use
  Company Number: IT-ROCHE-1863805

PATIENT
  Age: 55 Year
  Sex: Female

DRUGS (3)
  1. TACHIDOL [Concomitant]
     Active Substance: ACETAMINOPHEN\CODEINE PHOSPHATE
     Indication: PAIN
     Dosage: 500MG/30MG FILM-COATED TABLETS 16 SCORED TABLETS
     Route: 048
     Dates: start: 20161124, end: 20161130
  2. MACROGOL [Concomitant]
     Active Substance: POLYETHYLENE GLYCOLS
     Dosage: ^13.7 G OF POWDER FOR ORAL SOLUTION^ 20 SACHETS
     Route: 065
     Dates: start: 20161125, end: 20161130
  3. RIVOTRIL [Suspect]
     Active Substance: CLONAZEPAM
     Indication: SLEEP DISORDER
     Dosage: ^2.5 MG/ML ORAL DROPS, SOLUTION^ 10 ML BOTTLE
     Route: 048
     Dates: start: 20161129, end: 20161130

REACTIONS (2)
  - Oedema [Recovered/Resolved]
  - Rash [Recovered/Resolved]

NARRATIVE: CASE EVENT DATE: 20161130
